FAERS Safety Report 5774379-2 (Version None)
Quarter: 2008Q2

REPORT INFORMATION
  Report Type: 
  Country: None (occurrence: None)
  Receive Date: 20080616
  Receipt Date: 20080610
  Transmission Date: 20081010
  Serious: Yes (Hospitalization)
  Sender: FDA-Public Use
  Company Number: US-SANOFI-SYNTHELABO-F01200800959

PATIENT
  Age: 81 Year
  Sex: Male
  Weight: 49.8 kg

DRUGS (10)
  1. GLIMEPIRIDE [Concomitant]
  2. LEVEMIR [Concomitant]
  3. FLOMAX [Concomitant]
  4. RAMIPRIL [Concomitant]
     Dosage: UNK
  5. ACTOS [Concomitant]
  6. PANGESTINE EC [Concomitant]
  7. METFORMIN HCL [Concomitant]
  8. ASPIRIN [Concomitant]
     Dosage: UNK
     Route: 048
     Dates: start: 20080529
  9. GEMCITABINE [Suspect]
     Dosage: DAYS 1, 8 AND 15
     Route: 041
     Dates: start: 20080512, end: 20080512
  10. OXALIPLATIN [Suspect]
     Indication: PANCREATIC CARCINOMA
     Dosage: DAYS 1 AND 15
     Route: 041
     Dates: start: 20080505, end: 20080505

REACTIONS (1)
  - DUODENAL ULCER PERFORATION [None]
